FAERS Safety Report 5641531-6 (Version None)
Quarter: 2008Q1

REPORT INFORMATION
  Report Type: 
  Country: None (occurrence: None)
  Receive Date: 20080227
  Receipt Date: 20071019
  Transmission Date: 20080703
  Serious: No
  Sender: FDA-Public Use
  Company Number: A0688583A

PATIENT
  Age: 37 Year
  Sex: Male

DRUGS (1)
  1. NICORETTE [Suspect]
     Dates: start: 20071013, end: 20071015

REACTIONS (8)
  - ANOREXIA [None]
  - DRY MOUTH [None]
  - EATING DISORDER [None]
  - HYPERTROPHY OF TONGUE PAPILLAE [None]
  - ILL-DEFINED DISORDER [None]
  - IRRITABILITY [None]
  - ORAL DISCOMFORT [None]
  - ORAL PAIN [None]
